FAERS Safety Report 25658635 (Version 1)
Quarter: 2025Q3

REPORT INFORMATION
  Report Type: Spontaneous
  Country: CA (occurrence: CA)
  Receive Date: 20250808
  Receipt Date: 20250808
  Transmission Date: 20251021
  Serious: Yes (Other)
  Sender: NORDIC PHARMA
  Company Number: CA-NORDICGR-063568

PATIENT
  Age: 68 Year
  Sex: Female

DRUGS (4)
  1. METHOTREXATE [Suspect]
     Active Substance: METHOTREXATE
     Indication: Product used for unknown indication
  2. COSENTYX [Concomitant]
     Active Substance: SECUKINUMAB
     Indication: Psoriasis
     Dosage: 1 EVERY 1 MONTHS
     Route: 058
  3. COSENTYX [Concomitant]
     Active Substance: SECUKINUMAB
     Indication: Psoriasis
     Dosage: 1 EVERY 1 MONTHS
  4. CYCLOSPORINE [Concomitant]
     Active Substance: CYCLOSPORINE
     Indication: Product used for unknown indication

REACTIONS (6)
  - Anxiety [Recovered/Resolved]
  - Back pain [Recovered/Resolved]
  - Productive cough [Recovered/Resolved]
  - Lower respiratory tract infection [Recovered/Resolved]
  - Influenza [Recovered/Resolved]
  - Myalgia [Recovered/Resolved]
